FAERS Safety Report 6463153-X (Version None)
Quarter: 2009Q4

REPORT INFORMATION
  Report Type: 
  Country: None (occurrence: None)
  Receive Date: 20091123
  Receipt Date: 20091110
  Transmission Date: 20100525
  Serious: Yes (Life-Threatening, Hospitalization, Disabling)
  Sender: FDA-Public Use
  Company Number: 2009-04686

PATIENT
  Age: 51 Year
  Sex: Male

DRUGS (8)
  1. VELCADE [Suspect]
     Indication: MULTIPLE MYELOMA
     Dosage: UNK, UNK, INTRAVENOUS
     Route: 042
     Dates: start: 20090101, end: 20090101
  2. REVLIMID [Suspect]
     Indication: MULTIPLE MYELOMA
     Dosage: 25 MG, UNK, ORAL
     Route: 048
     Dates: start: 20090521, end: 20090523
  3. DECADRON [Concomitant]
  4. VASOTEC [Concomitant]
  5. CLONIDINE [Concomitant]
  6. CORTICOSTEROIDS [Concomitant]
  7. AGGRENOX [Concomitant]
  8. NICODERM [Concomitant]

REACTIONS (5)
  - BLINDNESS [None]
  - CEREBROVASCULAR ACCIDENT [None]
  - PERICARDIAL EFFUSION [None]
  - PNEUMONIA [None]
  - RESPIRATORY FAILURE [None]
